FAERS Safety Report 25672843 (Version 1)
Quarter: 2025Q3

REPORT INFORMATION
  Report Type: Spontaneous
  Country: US (occurrence: US)
  Receive Date: 20250812
  Receipt Date: 20250812
  Transmission Date: 20251020
  Serious: No
  Sender: ANI
  Company Number: US-ANIPHARMA-2025-US-005268

PATIENT
  Age: 48 Year
  Sex: Female

DRUGS (21)
  1. CORTICOTROPIN [Suspect]
     Active Substance: CORTICOTROPIN
     Indication: Systemic lupus erythematosus
     Route: 058
  2. IBUPROFEN [Concomitant]
     Active Substance: IBUPROFEN
  3. BIOTIN [Concomitant]
     Active Substance: BIOTIN
  4. VITAMIN C [Concomitant]
     Active Substance: ASCORBIC ACID
  5. FOLINIC-PLUS [Concomitant]
  6. DOCUSATE SODIUM [Concomitant]
     Active Substance: DOCUSATE SODIUM
  7. PROTONIX [Concomitant]
     Active Substance: PANTOPRAZOLE SODIUM
  8. CELLCEPT [Concomitant]
     Active Substance: MYCOPHENOLATE MOFETIL
  9. SINGULAIR [Concomitant]
     Active Substance: MONTELUKAST SODIUM
  10. DAPSONE [Concomitant]
     Active Substance: DAPSONE
  11. VITAMIN D [Concomitant]
     Active Substance: VITAMIN D NOS
  12. ASPIRIN [Concomitant]
     Active Substance: ASPIRIN
  13. FIBER DIET [Concomitant]
  14. ITRACONAZOLE [Concomitant]
     Active Substance: ITRACONAZOLE
  15. COLLAGEN [Concomitant]
     Active Substance: COLLAGEN
  16. XYZAL ALLERGY 24HR [Concomitant]
     Active Substance: LEVOCETIRIZINE DIHYDROCHLORIDE
  17. GEMTESA [Concomitant]
     Active Substance: VIBEGRON
  18. FLONASE [Concomitant]
     Active Substance: FLUTICASONE PROPIONATE
  19. VALTREX [Concomitant]
     Active Substance: VALACYCLOVIR HYDROCHLORIDE
  20. SAPHNELO [Concomitant]
     Active Substance: ANIFROLUMAB-FNIA
  21. CVS VITAMIN B12 [Concomitant]

REACTIONS (5)
  - Injection site urticaria [Not Recovered/Not Resolved]
  - Injection site pruritus [Not Recovered/Not Resolved]
  - Injection site erythema [Not Recovered/Not Resolved]
  - Injection site bruising [Not Recovered/Not Resolved]
  - Injection site discolouration [Not Recovered/Not Resolved]
